FAERS Safety Report 14738518 (Version 1)
Quarter: 2018Q2

REPORT INFORMATION
  Report Type: Spontaneous
  Country: DE (occurrence: DE)
  Receive Date: 20180409
  Receipt Date: 20180409
  Transmission Date: 20180711
  Serious: Yes (Other)
  Sender: FDA-Public Use
  Company Number: DE-009507513-1804DEU000377

PATIENT
  Sex: Male

DRUGS (1)
  1. FINASTERIDE. [Suspect]
     Active Substance: FINASTERIDE
     Indication: ALOPECIA

REACTIONS (6)
  - Bradyphrenia [Unknown]
  - Panic attack [Unknown]
  - Erectile dysfunction [Unknown]
  - Sleep disorder [Unknown]
  - Suicidal ideation [Unknown]
  - Feeling abnormal [Unknown]
